FAERS Safety Report 11757493 (Version 2)
Quarter: 2016Q2

REPORT INFORMATION
  Report Type: Spontaneous
  Country: NL (occurrence: NL)
  Receive Date: 20151120
  Receipt Date: 20160510
  Transmission Date: 20160815
  Serious: Yes (Hospitalization, Other)
  Sender: FDA-Public Use
  Company Number: NL-WATSON-2015-25276

PATIENT
  Age: 63 Year
  Sex: Male

DRUGS (2)
  1. BUDESONIDE (UNKNOWN) [Suspect]
     Active Substance: BUDESONIDE
     Indication: CROHN^S DISEASE
     Dosage: 9 MG, DAILY
     Route: 065
  2. BUDESONIDE (UNKNOWN) [Suspect]
     Active Substance: BUDESONIDE
     Dosage: 6 MG, DAILY
     Route: 065

REACTIONS (2)
  - Adrenal insufficiency [Recovering/Resolving]
  - Drug withdrawal syndrome [Recovering/Resolving]
